FAERS Safety Report 4341505-1 (Version None)
Quarter: 2004Q2

REPORT INFORMATION
  Report Type: 
  Country: None (occurrence: None)
  Receive Date: 20040419
  Receipt Date: 20040419
  Transmission Date: 20050107
  Serious: Yes (Life-Threatening, Hospitalization)
  Sender: FDA-Public Use
  Company Number: None

PATIENT
  Age: 56 Year
  Sex: Male
  Weight: 76 kg

DRUGS (1)
  1. GAMIMUNE [Suspect]
     Dosage: 76G X1 INFUSION INTRAVENOUS
     Route: 042
     Dates: start: 20040214, end: 20040214

REACTIONS (2)
  - BODY TEMPERATURE INCREASED [None]
  - CHILLS [None]
